FAERS Safety Report 4719874-X (Version None)
Quarter: 2005Q3

REPORT INFORMATION
  Report Type: 
  Country: None (occurrence: None)
  Receive Date: 20050721
  Receipt Date: 20041222
  Transmission Date: 20060218
  Serious: No
  Sender: FDA-Public Use
  Company Number: US-GLAXOSMITHKLINE-A0538304A

PATIENT
  Age: 66 Year
  Sex: Female

DRUGS (13)
  1. AVANDIA [Suspect]
     Dosage: 4MG PER DAY
     Route: 048
     Dates: start: 20041115
  2. PREDNISONE [Concomitant]
     Dosage: 10MG UNKNOWN
  3. OXYGEN [Concomitant]
  4. DEXAMETHASONE [Concomitant]
  5. ATROVENT [Concomitant]
  6. FUROSEMIDE [Concomitant]
  7. ZESTRIL [Concomitant]
  8. PREMARIN [Concomitant]
  9. METFORMIN HCL [Concomitant]
  10. K-DUR 10 [Concomitant]
  11. ZANTAC [Concomitant]
  12. BECONASE AQ [Concomitant]
  13. XALATAN [Concomitant]

REACTIONS (3)
  - DIARRHOEA [None]
  - IRRITABILITY [None]
  - OEDEMA PERIPHERAL [None]
